FAERS Safety Report 5137898-8 (Version None)
Quarter: 2006Q4

REPORT INFORMATION
  Report Type: 
  Country: None (occurrence: None)
  Receive Date: 20061030
  Receipt Date: 20060206
  Transmission Date: 20070319
  Serious: No
  Sender: FDA-Public Use
  Company Number: US-GLAXOSMITHKLINE-A0592509A

PATIENT
  Age: 11 Year
  Sex: Male
  Weight: 70.5 kg

DRUGS (5)
  1. ADVAIR HFA [Suspect]
     Indication: ASTHMA
     Dosage: 1PUFF TWICE PER DAY
     Route: 055
     Dates: start: 20010101
  2. FLONASE [Concomitant]
  3. PROVENTIL [Concomitant]
  4. SINGULAIR [Concomitant]
  5. XOPENEX [Concomitant]

REACTIONS (2)
  - OVERDOSE [None]
  - WEIGHT INCREASED [None]
